FAERS Safety Report 4774600-3 (Version None)
Quarter: 2005Q3

REPORT INFORMATION
  Report Type: 
  Country: None (occurrence: None)
  Receive Date: 20050919
  Receipt Date: 20050905
  Transmission Date: 20060218
  Serious: Yes (Hospitalization)
  Sender: FDA-Public Use
  Company Number: 2005124629

PATIENT
  Age: 25 Year
  Sex: Male

DRUGS (2)
  1. NICORETTE [Suspect]
     Indication: SMOKING CESSATION THERAPY
     Dosage: 21 MG DAILY, TRANSDERMAL
     Route: 062
     Dates: start: 20040303, end: 20040317
  2. DIAZEPAM [Concomitant]

REACTIONS (15)
  - AGGRESSION [None]
  - DECREASED APPETITE [None]
  - DIZZINESS [None]
  - GASTRIC ULCER [None]
  - GENERAL PHYSICAL HEALTH DETERIORATION [None]
  - HEADACHE [None]
  - HELICOBACTER INFECTION [None]
  - IRRITABILITY [None]
  - MALAISE [None]
  - MENTAL IMPAIRMENT [None]
  - MOOD SWINGS [None]
  - PAIN [None]
  - TINNITUS [None]
  - VOMITING [None]
  - WEIGHT DECREASED [None]
